FAERS Safety Report 7588712-2 (Version None)
Quarter: 2011Q3

REPORT INFORMATION
  Report Type: 
  Country: None (occurrence: None)
  Receive Date: 20110705
  Receipt Date: 20110610
  Transmission Date: 20111222
  Serious: Yes (Other)
  Sender: FDA-Public Use
  Company Number: US-BAYER-2011-024481

PATIENT
  Age: 27 Year
  Sex: Female
  Weight: 54 kg

DRUGS (3)
  1. ZYRTEC [Concomitant]
     Indication: HYPERSENSITIVITY
     Dosage: UNK UNK, QD
  2. YAZ [Suspect]
     Indication: ACNE
     Dosage: UNK
     Route: 048
     Dates: start: 20070101, end: 20100101
  3. MOTRIN [Concomitant]
     Indication: HEADACHE
     Dosage: 1/MONTH

REACTIONS (4)
  - PAIN [None]
  - GALLBLADDER DISORDER [None]
  - INJURY [None]
  - CHOLECYSTITIS CHRONIC [None]
